FAERS Safety Report 22268525 (Version 1)
Quarter: 2023Q2

REPORT INFORMATION
  Report Type: Other
  Country: US (occurrence: None)
  Receive Date: 20230430
  Receipt Date: 20230430
  Transmission Date: 20230722
  Serious: Yes (Other)
  Sender: FDA-Public Use
  Company Number: US-ROCHE-3337853

PATIENT
  Age: 56 Year
  Sex: Female

DRUGS (3)
  1. ACTEMRA [Suspect]
     Active Substance: TOCILIZUMAB
     Indication: Rheumatoid arthritis
     Route: 058
  2. ACTEMRA [Suspect]
     Active Substance: TOCILIZUMAB
     Indication: Atrial fibrillation
  3. ACTEMRA [Suspect]
     Active Substance: TOCILIZUMAB
     Indication: Connective tissue disorder

REACTIONS (2)
  - Cardiomyopathy [Unknown]
  - Off label use [Unknown]

NARRATIVE: CASE EVENT DATE: 20221101
